FAERS Safety Report 4637200-1 (Version None)
Quarter: 2005Q2

REPORT INFORMATION
  Report Type: 
  Country: None (occurrence: None)
  Receive Date: 20050325
  Receipt Date: 20041129
  Transmission Date: 20051028
  Serious: No
  Sender: FDA-Public Use
  Company Number: USA041079831

PATIENT
  Age: 77 Year
  Sex: Female
  Weight: 59 kg

DRUGS (13)
  1. FORTEO [Suspect]
     Indication: OSTEOPOROSIS
     Dosage: 20 UG DAY
     Dates: start: 20040930
  2. CALCIUM GLUCONATE [Concomitant]
  3. CALTRATE (CALCIUM CARBONATE) [Concomitant]
  4. CLARINEX [Concomitant]
  5. MULTIVITAMINS W/MINERALS [Concomitant]
  6. VITAMIN E [Concomitant]
  7. ASPIRIN [Concomitant]
  8. XALATAN [Concomitant]
  9. ALPHAGAN [Concomitant]
  10. CHONDROTIN W/GLUCOSAMINE [Concomitant]
  11. MAGNESIUM [Concomitant]
  12. TYLENOL  USA/(PARACETAMOL) [Concomitant]
  13. ALKA-SELTZER [Concomitant]

REACTIONS (5)
  - CONSTIPATION [None]
  - DIZZINESS [None]
  - FATIGUE [None]
  - FEELING ABNORMAL [None]
  - GASTROINTESTINAL DISORDER [None]
